FAERS Safety Report 23041897 (Version 6)
Quarter: 2023Q4

REPORT INFORMATION
  Report Type: Spontaneous
  Country: FR (occurrence: FR)
  Receive Date: 20231007
  Receipt Date: 20231228
  Transmission Date: 20240110
  Serious: Yes (Death, Hospitalization, Other)
  Sender: FDA-Public Use
  Company Number: FR-BAXTER-2023BAX031915

PATIENT
  Age: 0 Year
  Sex: Male
  Weight: 105 kg

DRUGS (57)
  1. DOXORUBICIN [Suspect]
     Active Substance: DOXORUBICIN
     Indication: Diffuse large B-cell lymphoma
     Dosage: 50 MG/M2, EVERY 3 WEEKS
     Route: 042
     Dates: start: 20230816
  2. DOXORUBICIN [Suspect]
     Active Substance: DOXORUBICIN
     Dosage: 100 MILLIGRAM, CYCLICAL (100 MG CYCLE 1 DAY 1, EVERY 3 WEEKS)
     Route: 042
     Dates: start: 20230816
  3. PREDNISONE [Suspect]
     Active Substance: PREDNISONE
     Indication: Diffuse large B-cell lymphoma
     Dosage: 100 MILLIGRAM, DAILY (100 MG DAILY C1-6, DAY 1-5, EVERY 1 DAYS)
     Route: 048
     Dates: start: 20230816
  4. CYCLOPHOSPHAMIDE [Suspect]
     Active Substance: CYCLOPHOSPHAMIDE
     Indication: Diffuse large B-cell lymphoma
     Dosage: 750 MG/M2, EVERY 3 WEEKS
     Route: 042
  5. CYCLOPHOSPHAMIDE [Suspect]
     Active Substance: CYCLOPHOSPHAMIDE
     Dosage: 1500 MILLIGRAM, CYCLICAL (1500 MG CYCLE 1 DAY 1, EVERY 3 WEEKS)
     Route: 042
     Dates: start: 20230816
  6. EPCORITAMAB [Suspect]
     Active Substance: EPCORITAMAB
     Indication: Diffuse large B-cell lymphoma
     Dosage: 0.8 MG INTERMEDIATE DOSE C1, D8, TOTAL
     Route: 058
     Dates: start: 20230823, end: 20230823
  7. EPCORITAMAB [Suspect]
     Active Substance: EPCORITAMAB
     Dosage: 0.16 MILLIGRAM (PRIMING DOSE C1, D1, TOTAL)
     Route: 058
     Dates: start: 20230823, end: 20230823
  8. RITUXIMAB [Suspect]
     Active Substance: RITUXIMAB
     Indication: Diffuse large B-cell lymphoma
     Dosage: UNK
     Route: 042
  9. RITUXIMAB [Suspect]
     Active Substance: RITUXIMAB
     Dosage: 375 MILLILITRE PER SQUARE METRE (375 MG/M2, EVERY 3 WEEKS)
     Route: 042
     Dates: start: 20230816
  10. VINCRISTINE [Suspect]
     Active Substance: VINCRISTINE
     Indication: Diffuse large B-cell lymphoma
     Dosage: UNK
     Route: 042
  11. VINCRISTINE [Suspect]
     Active Substance: VINCRISTINE
     Dosage: 1.4 MILLILITRE PER SQUARE METRE (1.4 MG/M2, EVERY 3 WEEKS)
     Route: 042
     Dates: start: 20230816
  12. VINCRISTINE [Suspect]
     Active Substance: VINCRISTINE
     Dosage: 2 MILLIGRAM, CYCLICAL (2 MG CYCLE 1 DAY 1, EVERY 3 WEEKS)
     Route: 042
     Dates: start: 20230816
  13. AMITRIPTYLINE [Concomitant]
     Active Substance: AMITRIPTYLINE
     Indication: Sleep disorder
     Dosage: 5 DROP, ONCE A DAY
     Route: 065
     Dates: start: 20230809
  14. ATORVASTATIN [Concomitant]
     Active Substance: ATORVASTATIN
     Indication: Dyslipidaemia
     Dosage: 10 MILLIGRAM, ONCE A DAY
     Route: 065
     Dates: start: 20230809
  15. ALLOPURINOL [Concomitant]
     Active Substance: ALLOPURINOL
     Indication: Hyperuricaemia
     Dosage: 100 MILLIGRAM, 3/DAYS
     Route: 065
     Dates: start: 20230809
  16. MORPHINE SULFATE [Concomitant]
     Active Substance: MORPHINE SULFATE
     Indication: Chest pain
     Dosage: 5 MILLIGRAM, AS NECESSARY
     Route: 065
     Dates: start: 20230823
  17. MORPHINE SULFATE [Concomitant]
     Active Substance: MORPHINE SULFATE
     Indication: Abdominal pain
  18. APIXABAN [Concomitant]
     Active Substance: APIXABAN
     Indication: Arrhythmia
     Dosage: 5 MILLIGRAM, 2/DAYS
     Route: 065
     Dates: start: 20230828
  19. APIXABAN [Concomitant]
     Active Substance: APIXABAN
     Dosage: 2.5 GRAM, 2/DAYS
     Route: 065
     Dates: start: 20230906, end: 20230911
  20. AMIKACIN [Concomitant]
     Active Substance: AMIKACIN
     Indication: Febrile bone marrow aplasia
     Dosage: 3000 MILLIGRAM, TOTAL
     Route: 065
     Dates: start: 20230824
  21. AMIODARONE HYDROCHLORIDE [Concomitant]
     Active Substance: AMIODARONE HYDROCHLORIDE
     Indication: Arrhythmia
     Dosage: 200 MILLIGRAM, 2/DAYS
     Route: 065
  22. CANDESARTAN [Concomitant]
     Active Substance: CANDESARTAN
     Indication: Hypertension
     Dosage: 16 MILLIGRAM, EVERY 1 DAY
     Route: 065
     Dates: start: 20230824
  23. DAPTOMYCIN [Concomitant]
     Active Substance: DAPTOMYCIN
     Indication: Febrile bone marrow aplasia
     Dosage: 1000 MILLIGRAM, ONCE A DAY
     Route: 065
     Dates: start: 20230824
  24. DAPTOMYCIN [Concomitant]
     Active Substance: DAPTOMYCIN
     Indication: Staphylococcal infection
  25. DEXAMETHASONE [Concomitant]
     Active Substance: DEXAMETHASONE
     Indication: Chills
     Dosage: 40 MILLIGRAM, TOTAL
     Route: 065
     Dates: start: 20230824
  26. DEXAMETHASONE [Concomitant]
     Active Substance: DEXAMETHASONE
     Indication: Wheezing
  27. POTASSIUM CHLORIDE [Concomitant]
     Active Substance: POTASSIUM CHLORIDE
     Indication: Hypokalaemia
     Dosage: 600 MILLIGRAM, 6/DAYS
     Route: 065
     Dates: start: 20230828
  28. POTASSIUM CHLORIDE [Concomitant]
     Active Substance: POTASSIUM CHLORIDE
     Dosage: 600 MILLIGRAM
     Route: 065
     Dates: start: 20230906
  29. HYDROCHLOROTHIAZIDE [Concomitant]
     Active Substance: HYDROCHLOROTHIAZIDE
     Indication: Hypertension
     Dosage: 12.5 MILLIGRAM, EVERY 1 DAY
     Route: 065
     Dates: start: 20230924
  30. FUROSEMIDE [Concomitant]
     Active Substance: FUROSEMIDE
     Indication: Acute kidney injury
     Dosage: 20 MILLIGRAM, ONCE A DAY
     Route: 065
     Dates: start: 20230828, end: 20230829
  31. FUROSEMIDE [Concomitant]
     Active Substance: FUROSEMIDE
     Indication: Sodium retention
     Dosage: 40 MILLIGRAM, ONCE A DAY
     Route: 065
     Dates: start: 20230905
  32. FILGRASTIM [Concomitant]
     Active Substance: FILGRASTIM
     Indication: Aplasia
     Dosage: 24 MU/L, EVERY 1 DAYS
     Route: 065
     Dates: start: 20230821
  33. GABAPENTIN [Concomitant]
     Active Substance: GABAPENTIN
     Indication: Product used for unknown indication
     Dosage: 100 MILLIGRAM, 3/DAYS
     Route: 065
     Dates: start: 20230823
  34. KARDEGIC [Concomitant]
     Active Substance: ASPIRIN DL-LYSINE
     Indication: Peripheral artery angioplasty
     Dosage: 75 MILLIGRAM, 2/DAYS
     Route: 065
  35. LIDOCAINE [Concomitant]
     Active Substance: LIDOCAINE
     Indication: Product used for unknown indication
     Dosage: 5 PERCENT, EVERY 1 DAY
     Route: 065
     Dates: start: 20230810, end: 20230813
  36. LIDOCAINE [Concomitant]
     Active Substance: LIDOCAINE
     Dosage: 5 PERCENT, EVERY 1 DAY
     Route: 065
     Dates: start: 20230817
  37. LIDOCAINE [Concomitant]
     Active Substance: LIDOCAINE
     Dosage: 5 PERCENT, EVERY 1 DAY
     Route: 065
     Dates: start: 20230810
  38. POLYETHYLENE GLYCOLS [Concomitant]
     Active Substance: POLYETHYLENE GLYCOLS
     Indication: Constipation
     Dosage: 10 GRAM, 3/DAYS
     Route: 065
     Dates: start: 20230814
  39. METHYLPREDNISOLONE [Concomitant]
     Active Substance: METHYLPREDNISOLONE
     Indication: Chemotherapy
     Dosage: 100 MILLIGRAM, EVERY 1 DAY
     Route: 065
     Dates: start: 20230809
  40. NEFOPAM [Concomitant]
     Active Substance: NEFOPAM
     Indication: Chest pain
     Dosage: 20 MILLIGRAM, AS NECESSARY
     Route: 065
     Dates: start: 20230812
  41. NEFOPAM [Concomitant]
     Active Substance: NEFOPAM
     Indication: Abdominal pain
  42. NEBIVOLOL [Concomitant]
     Active Substance: NEBIVOLOL
     Indication: Hypertension
     Dosage: 2.5 MILLIGRAM, EVERY 1 DAY
     Route: 065
     Dates: start: 20230828
  43. IRON [Concomitant]
     Active Substance: IRON
     Indication: Anaemia prophylaxis
     Dosage: 66 MILLIGRAM, 2/DAYS
     Route: 065
     Dates: start: 20230809
  44. PANTOPRAZOLE [Concomitant]
     Active Substance: PANTOPRAZOLE
     Indication: Prophylaxis against gastrointestinal ulcer
     Dosage: 20 MILLIGRAM, 1 EVERY DAY
     Route: 065
     Dates: start: 20230809
  45. SKENAN [Concomitant]
     Active Substance: MORPHINE SULFATE
     Indication: Chest pain
     Dosage: 30 MILLIGRAM
     Route: 065
     Dates: start: 20230823
  46. SKENAN [Concomitant]
     Active Substance: MORPHINE SULFATE
     Indication: Abdominal pain
  47. CLOXACILLIN [Concomitant]
     Active Substance: CLOXACILLIN
     Indication: Febrile bone marrow aplasia
     Dosage: 2 GRAM, EVERY 4 HOURS
     Route: 065
     Dates: start: 20230825
  48. PHOSPHORUS [Concomitant]
     Active Substance: PHOSPHORUS
     Indication: Hypophosphataemia
     Dosage: 30 DROP, 3/DAYS
     Route: 065
     Dates: start: 20230818
  49. PIPERACILLIN SODIUM [Concomitant]
     Active Substance: PIPERACILLIN SODIUM
     Indication: Febrile bone marrow aplasia
     Dosage: 4 GRAM, FOUR TIMES/DAY
     Route: 065
     Dates: start: 20230824
  50. RILMENIDINE [Concomitant]
     Active Substance: RILMENIDINE
     Indication: Hypertension
     Dosage: 1 MILLIGRAM, ONCE A DAY
     Route: 065
     Dates: start: 20230828
  51. TRAMADOL [Concomitant]
     Active Substance: TRAMADOL\TRAMADOL HYDROCHLORIDE
     Indication: Abdominal pain
     Dosage: 100 MILLIGRAM, EVERY 1 DAY
     Route: 065
     Dates: start: 20230814, end: 20230823
  52. TRAMADOL [Concomitant]
     Active Substance: TRAMADOL\TRAMADOL HYDROCHLORIDE
     Indication: Chest pain
     Dosage: 150 MILLIGRAM, EVERY 1 DAY
     Route: 065
     Dates: start: 20230809, end: 20230814
  53. TAZOBACTAM [Concomitant]
     Active Substance: TAZOBACTAM
     Indication: Febrile bone marrow aplasia
     Dosage: 0.5 GRAM, FOUR TIMES/DAY
     Route: 065
     Dates: start: 20230824
  54. TERBUTALINE [Concomitant]
     Active Substance: TERBUTALINE
     Indication: Oxygen therapy
     Dosage: 5 MILLIGRAM, TOTAL
     Route: 065
     Dates: start: 20230824
  55. TERBUTALINE [Concomitant]
     Active Substance: TERBUTALINE
     Indication: Hypoxia
  56. VALACYCLOVIR HYDROCHLORIDE [Concomitant]
     Active Substance: VALACYCLOVIR HYDROCHLORIDE
     Indication: Infection prophylaxis
     Dosage: 50 MILLIGRAM, ONCE A DAY
     Route: 065
     Dates: start: 20230831
  57. ZOPICLONE [Concomitant]
     Active Substance: ZOPICLONE
     Indication: Sleep disorder
     Dosage: 3.75 MILLIGRAM, EVERY 1 DAY
     Route: 065
     Dates: start: 20230829

REACTIONS (5)
  - Enterobacter pneumonia [Fatal]
  - Cytokine release syndrome [Not Recovered/Not Resolved]
  - Escherichia infection [Not Recovered/Not Resolved]
  - Staphylococcal infection [Recovered/Resolved]
  - Acute kidney injury [Not Recovered/Not Resolved]

NARRATIVE: CASE EVENT DATE: 20230824
